FAERS Safety Report 9225101 (Version 1)
Quarter: 2013Q1

REPORT INFORMATION
  Report Type: Spontaneous
  Country: US (occurrence: None)
  Receive Date: 20120912
  Receipt Date: 20120912
  Transmission Date: 20140127
  Serious: No
  Sender: FDA-Public Use
  Company Number: 2012SP026043

PATIENT
  Age: 37 Year
  Sex: Female

DRUGS (3)
  1. SAPHRIS [Suspect]
     Indication: ANXIETY
     Route: 060
     Dates: start: 201203
  2. ABILIFY [Concomitant]
  3. PAXIL [Concomitant]

REACTIONS (3)
  - Oral mucosal blistering [None]
  - Oral pain [None]
  - Off label use [None]
